FAERS Safety Report 25371695 (Version 1)
Quarter: 2025Q2

REPORT INFORMATION
  Report Type: Spontaneous
  Country: US (occurrence: US)
  Receive Date: 20250529
  Receipt Date: 20250529
  Transmission Date: 20250716
  Serious: No
  Sender: ELI LILLY AND COMPANY
  Company Number: US-ELI_LILLY_AND_COMPANY-US202505015825

PATIENT
  Age: 29 Year
  Sex: Female
  Weight: 70.295 kg

DRUGS (15)
  1. EMGALITY [Suspect]
     Active Substance: GALCANEZUMAB-GNLM
     Indication: Migraine prophylaxis
     Dosage: 120 MG, MONTHLY (1/M)
     Route: 058
     Dates: start: 201903
  2. TYLENOL [Suspect]
     Active Substance: ACETAMINOPHEN
     Indication: Migraine
     Route: 048
     Dates: start: 2018
  3. BENADRYL [Suspect]
     Active Substance: DIPHENHYDRAMINE HYDROCHLORIDE
     Indication: Migraine
     Route: 048
     Dates: start: 2019
  4. TRULANCE [Concomitant]
     Active Substance: PLECANATIDE
     Indication: Irritable bowel syndrome
     Route: 048
     Dates: start: 2022, end: 202411
  5. IBUPROFEN [Concomitant]
     Active Substance: IBUPROFEN
     Indication: Dysmenorrhoea
     Route: 048
  6. ASPIRIN [Concomitant]
     Active Substance: ASPIRIN
     Indication: Cerebrovascular accident
     Dosage: 81 MG, DAILY
     Route: 048
     Dates: start: 2018
  7. FOLIC ACID [Concomitant]
     Active Substance: FOLIC ACID
     Indication: Pregnancy
     Dosage: 800 UG, DAILY
     Route: 048
     Dates: start: 202502
  8. MAGNESIUM [Concomitant]
     Active Substance: MAGNESIUM
     Indication: Muscle spasms
     Dosage: 400 MG, DAILY
     Route: 048
     Dates: start: 2015
  9. MAGNESIUM [Concomitant]
     Active Substance: MAGNESIUM
     Indication: Constipation
  10. VITAMIN D NOS [Concomitant]
     Active Substance: CHOLECALCIFEROL\ERGOCALCIFEROL
     Indication: Supplementation therapy
     Dosage: 5000 INTERNATIONAL UNIT, DAILY
     Route: 048
     Dates: start: 2010
  11. PRENATAL VITAMINS [ASCORBIC ACID;BETACAROTENE [Concomitant]
     Indication: Pregnancy
     Dosage: 1 DOSAGE FORM, DAILY
     Route: 048
     Dates: start: 2022
  12. ZINC [Concomitant]
     Active Substance: ZINC
     Indication: Immune system disorder
     Dosage: 500 MG, DAILY
     Route: 048
     Dates: start: 2010
  13. VITAMIN B6 [Concomitant]
     Active Substance: PYRIDOXINE HYDROCHLORIDE
     Indication: Pregnancy
     Dosage: 100 MG, DAILY
     Route: 048
     Dates: start: 202502, end: 202504
  14. VITAMIN B6 [Concomitant]
     Active Substance: PYRIDOXINE HYDROCHLORIDE
     Indication: Nausea
  15. TRETINOIN [Concomitant]
     Active Substance: TRETINOIN
     Indication: Acne
     Route: 061
     Dates: start: 202404, end: 202501

REACTIONS (2)
  - Maternal exposure before pregnancy [Unknown]
  - Vaginal haemorrhage [Recovered/Resolved]

NARRATIVE: CASE EVENT DATE: 20250303
